FAERS Safety Report 10351213 (Version 4)
Quarter: 2014Q3

REPORT INFORMATION
  Report Type: Spontaneous
  Country: US (occurrence: US)
  Receive Date: 20140730
  Receipt Date: 20140903
  Transmission Date: 20150326
  Serious: Yes (Hospitalization)
  Sender: FDA-Public Use
  Company Number: US-BAXTER-2014BAX039656

PATIENT
  Sex: Male

DRUGS (6)
  1. DIANEAL LOW CALCIUM PERITONEAL DIALYSIS SOLUTION WITH DEXTROSE [Suspect]
     Active Substance: CALCIUM CHLORIDE\DEXTROSE\MAGNESIUM CHLORIDE\SODIUM CHLORIDE\SODIUM LACTATE
     Indication: RENAL FAILURE CHRONIC
     Route: 033
     Dates: start: 20140314
  2. DIANEAL LOW CALCIUM PERITONEAL DIALYSIS SOLUTION WITH DEXTROSE [Suspect]
     Active Substance: CALCIUM CHLORIDE\DEXTROSE\MAGNESIUM CHLORIDE\SODIUM CHLORIDE\SODIUM LACTATE
     Indication: RENAL FAILURE CHRONIC
     Route: 033
     Dates: start: 20140314
  3. SPIRIVA [Concomitant]
     Active Substance: TIOTROPIUM BROMIDE MONOHYDRATE
     Indication: COUGH
  4. VENTOLIN [Concomitant]
     Active Substance: ALBUTEROL SULFATE
     Indication: COUGH
  5. DIANEAL LOW CALCIUM PERITONEAL DIALYSIS SOLUTION WITH DEXTROSE [Suspect]
     Active Substance: CALCIUM CHLORIDE\DEXTROSE\MAGNESIUM CHLORIDE\SODIUM CHLORIDE\SODIUM LACTATE
     Indication: RENAL FAILURE CHRONIC
     Route: 033
     Dates: start: 20140314
  6. SYMBICORT [Concomitant]
     Active Substance: BUDESONIDE\FORMOTEROL FUMARATE DIHYDRATE
     Indication: COUGH

REACTIONS (8)
  - Hypersensitivity [Not Recovered/Not Resolved]
  - Gastric dilatation [Unknown]
  - Abdominal distension [Not Recovered/Not Resolved]
  - Chronic obstructive pulmonary disease [Recovering/Resolving]
  - Hypotension [Recovered/Resolved]
  - Catheter site haemorrhage [Recovered/Resolved]
  - Multimorbidity [Unknown]
  - Asthma [Not Recovered/Not Resolved]
